FAERS Safety Report 15058606 (Version 1)
Quarter: 2018Q2

REPORT INFORMATION
  Report Type: Spontaneous
  Country: TH (occurrence: TH)
  Receive Date: 20180625
  Receipt Date: 20180625
  Transmission Date: 20180711
  Serious: Yes (Other)
  Sender: FDA-Public Use
  Company Number: PHHY2018TH024297

PATIENT
  Age: 71 Year
  Sex: Female

DRUGS (1)
  1. LETROZOLE. [Suspect]
     Active Substance: LETROZOLE
     Indication: PRODUCT USED FOR UNKNOWN INDICATION
     Dosage: UNK
     Route: 065
     Dates: start: 200710

REACTIONS (14)
  - Metastasis [Unknown]
  - Gait disturbance [Unknown]
  - Pulmonary mass [Unknown]
  - Breast calcifications [Unknown]
  - Metastases to the mediastinum [Unknown]
  - Budd-Chiari syndrome [Unknown]
  - Metastases to lung [Unknown]
  - Flatulence [Unknown]
  - Abdominal distension [Unknown]
  - Scar [Unknown]
  - Atelectasis [Unknown]
  - Hepatic vein thrombosis [Unknown]
  - Ascites [Unknown]
  - Oedema peripheral [Unknown]

NARRATIVE: CASE EVENT DATE: 20121026
